FAERS Safety Report 4673273-8 (Version None)
Quarter: 2005Q2

REPORT INFORMATION
  Report Type: 
  Country: None (occurrence: None)
  Receive Date: 20050523
  Receipt Date: 20050523
  Transmission Date: 20051028
  Serious: Yes (Life-Threatening, Hospitalization)
  Sender: FDA-Public Use
  Company Number: None

PATIENT
  Age: 69 Year
  Sex: Male
  Weight: 89.8 kg

DRUGS (18)
  1. WARFARIN [Suspect]
     Indication: ANTICOAGULANT THERAPY
     Dosage: 5MG, DAILY EX,ORAL
     Route: 048
  2. PYRIDOXINE HCL [Concomitant]
  3. CARVEDILOL [Concomitant]
  4. CICLOPIROX OLAMINE [Concomitant]
  5. SIMVASTATIN [Concomitant]
  6. PSYLLIUM POWDER SUGARFREE [Concomitant]
  7. TERAZOSIN [Concomitant]
  8. UREA [Concomitant]
  9. NITROGLYCERIN [Concomitant]
  10. POTASSIUM CHLORIDE [Concomitant]
  11. CLONIDINE [Concomitant]
  12. DIGOXIN [Concomitant]
  13. FUROSEMIDE [Concomitant]
  14. LISINOPRIL [Concomitant]
  15. RANITIDINE [Concomitant]
  16. LOPERAMIDE [Concomitant]
  17. PAPAIN/UREA [Concomitant]
  18. GLYBURIDE [Concomitant]

REACTIONS (2)
  - FAECAL OCCULT BLOOD POSITIVE [None]
  - LOWER GASTROINTESTINAL HAEMORRHAGE [None]
